FAERS Safety Report 18589942 (Version 1)
Quarter: 2020Q4

REPORT INFORMATION
  Report Type: Spontaneous
  Country: US (occurrence: US)
  Receive Date: 20201207
  Receipt Date: 20201207
  Transmission Date: 20210114
  Serious: No
  Sender: FDA-Public Use
  Company Number: None

PATIENT
  Age: 73 Year
  Sex: Female
  Weight: 79.07 kg

DRUGS (5)
  1. NAPROXEN SODIUM 220MG, ORAL [Concomitant]
  2. IBRANCE [Suspect]
     Active Substance: PALBOCICLIB
     Indication: BREAST CANCER FEMALE
     Route: 048
     Dates: start: 20201107
  3. CALCIUM 600+D ORAL [Concomitant]
  4. OMEPRAZOLE 20MG, ORAL [Concomitant]
  5. MULTIVITAMIN, ORAL [Concomitant]

REACTIONS (1)
  - Nausea [None]

NARRATIVE: CASE EVENT DATE: 20201207
